FAERS Safety Report 8058030-7 (Version None)
Quarter: 2012Q1

REPORT INFORMATION
  Report Type: 
  Country: None (occurrence: None)
  Receive Date: 20120113
  Receipt Date: 20111228
  Transmission Date: 20120608
  Serious: Yes (Death, Hospitalization)
  Sender: FDA-Public Use
  Company Number: CIP11003241

PATIENT
  Age: 80 Year
  Sex: Female

DRUGS (3)
  1. RISEDRONATE SODIUM [Suspect]
     Indication: OSTEOPOROSIS
     Dosage: 17.5 MG ONCE WEEKLY, ORAL
     Route: 048
     Dates: start: 20110701, end: 20111123
  2. ALL OTHER THERAPEUTIC PRODUCTS (ELDECALCITOL) [Concomitant]
  3. ADRENAL CORTICAL EXTRACT (ADRENAL CORTICAL EXTRACT) [Concomitant]

REACTIONS (4)
  - INTERSTITIAL LUNG DISEASE [None]
  - PYREXIA [None]
  - LYMPHOCYTE STIMULATION TEST POSITIVE [None]
  - BACK PAIN [None]
